FAERS Safety Report 7572276-3 (Version None)
Quarter: 2011Q2

REPORT INFORMATION
  Report Type: 
  Country: None (occurrence: None)
  Receive Date: 20110624
  Receipt Date: 20110615
  Transmission Date: 20111010
  Serious: Yes (Hospitalization)
  Sender: FDA-Public Use
  Company Number: PHHY2011US37094

PATIENT
  Sex: Female
  Weight: 68.027 kg

DRUGS (1)
  1. GILENYA [Suspect]
     Indication: MULTIPLE SCLEROSIS
     Dosage: 0.5 MG, QD
     Route: 048
     Dates: start: 20110420

REACTIONS (5)
  - SYNCOPE [None]
  - MIGRAINE [None]
  - DIZZINESS [None]
  - MULTIPLE SCLEROSIS [None]
  - FATIGUE [None]
